FAERS Safety Report 4435743-7 (Version None)
Quarter: 2004Q3

REPORT INFORMATION
  Report Type: 
  Country: None (occurrence: None)
  Receive Date: 20040826
  Receipt Date: 20040811
  Transmission Date: 20050211
  Serious: Yes (Other)
  Sender: FDA-Public Use
  Company Number: 202865

PATIENT
  Age: 57 Year
  Sex: Female
  Weight: 49.8957 kg

DRUGS (6)
  1. AVONEX [Suspect]
     Indication: MULTIPLE SCLEROSIS
     Dosage: 30 MCG QW IM
     Route: 030
     Dates: start: 19960101, end: 19980101
  2. AVONEX [Suspect]
     Dosage: 30 MCG QW IM
     Route: 030
     Dates: start: 19980101, end: 20031001
  3. AVONEX [Suspect]
     Dosage: 30 MCG QW IM
     Route: 030
     Dates: start: 20031001
  4. ACTONEL [Concomitant]
  5. EVISTA [Concomitant]
  6. DETROL [Concomitant]

REACTIONS (5)
  - BILIARY CIRRHOSIS [None]
  - FUNGAL INFECTION [None]
  - OEDEMA PERIPHERAL [None]
  - RASH ERYTHEMATOUS [None]
  - RASH PRURITIC [None]
